FAERS Safety Report 4587641-6 (Version None)
Quarter: 2005Q1

REPORT INFORMATION
  Report Type: 
  Country: None (occurrence: None)
  Receive Date: 20050125
  Receipt Date: 20040907
  Transmission Date: 20050727
  Serious: No
  Sender: FDA-Public Use
  Company Number: USA040977665

PATIENT
  Age: 73 Year
  Sex: Female
  Weight: 64 kg

DRUGS (5)
  1. FORTEO [Suspect]
     Indication: OSTEOPOROSIS
     Dosage: 20 UG DAY
     Dates: start: 20040401
  2. EVISTA [Suspect]
     Indication: OSTEOPOROSIS
  3. COUMADIN [Concomitant]
  4. LANOXIN [Concomitant]
  5. FLUTICASONE PROPIONATE W/ SALMETEROL XINAFOATE [Concomitant]

REACTIONS (11)
  - DRUG INEFFECTIVE [None]
  - HEART RATE INCREASED [None]
  - INJECTION SITE ERYTHEMA [None]
  - INJECTION SITE HAEMORRHAGE [None]
  - INJECTION SITE PAIN [None]
  - INSOMNIA [None]
  - MIGRAINE [None]
  - MIGRAINE WITH AURA [None]
  - MYALGIA [None]
  - NOCTURIA [None]
  - PAIN [None]
